FAERS Safety Report 8823194 (Version 1)
Quarter: 2012Q4

REPORT INFORMATION
  Report Type: 
  Country: DE (occurrence: DE)
  Receive Date: 20121003
  Receipt Date: 20121003
  Transmission Date: 20130627
  Serious: Yes (Life-Threatening, Hospitalization)
  Sender: FDA-Public Use
  Company Number: DE-ROCHE-1139979

PATIENT
  Age: 67 Year
  Sex: Male

DRUGS (1)
  1. MABTHERA [Suspect]
     Indication: B-CELL LYMPHOMA
     Route: 042
     Dates: start: 20120510

REACTIONS (3)
  - Dyspnoea [Recovered/Resolved]
  - Immobile [Recovered/Resolved]
  - Pneumonitis [Recovered/Resolved]
